FAERS Safety Report 6335123-3 (Version None)
Quarter: 2009Q3

REPORT INFORMATION
  Report Type: 
  Country: None (occurrence: None)
  Receive Date: 20090826
  Receipt Date: 20090812
  Transmission Date: 20100115
  Serious: Yes (Death)
  Sender: FDA-Public Use
  Company Number: BVT-000293

PATIENT
  Sex: Female

DRUGS (1)
  1. KINERET [Suspect]
     Indication: RHEUMATOID ARTHRITIS
     Dates: start: 20060508, end: 20060524

REACTIONS (2)
  - BRONCHOPNEUMONIA [None]
  - PERIPHERAL VASCULAR DISORDER [None]
